FAERS Safety Report 25849502 (Version 3)
Quarter: 2025Q4

REPORT INFORMATION
  Report Type: Spontaneous
  Country: US (occurrence: US)
  Receive Date: 20250926
  Receipt Date: 20251224
  Transmission Date: 20260118
  Serious: Yes (Other)
  Sender: BRISTOL-MYERS SQUIBB COMPANY
  Company Number: US-BRISTOL-MYERS SQUIBB COMPANY-2025-131821

PATIENT
  Age: 80 Year
  Sex: Female

DRUGS (1)
  1. REVLIMID [Suspect]
     Active Substance: LENALIDOMIDE
     Indication: Plasma cell myeloma
     Dosage: DAILY, QD FOR 21 DAYS ON, 7 OFF
     Route: 048

REACTIONS (8)
  - Adrenal insufficiency [Unknown]
  - Product dose omission issue [Unknown]
  - Decreased appetite [Unknown]
  - Dyspepsia [Unknown]
  - Fatigue [Unknown]
  - Urinary tract infection [Unknown]
  - Sinusitis [Unknown]
  - Taste disorder [Unknown]
